FAERS Safety Report 5839470-0 (Version None)
Quarter: 2008Q3

REPORT INFORMATION
  Report Type: 
  Country: None (occurrence: None)
  Receive Date: 20080807
  Receipt Date: 20080724
  Transmission Date: 20090109
  Serious: Yes (Hospitalization)
  Sender: FDA-Public Use
  Company Number: 2008SP013303

PATIENT
  Age: 50 Year
  Sex: Male

DRUGS (4)
  1. REBETOL [Suspect]
     Indication: HEPATITIS C
     Dates: start: 20061110, end: 20070116
  2. PEGASYS [Suspect]
     Indication: HEPATITIS C
     Dates: start: 20061110, end: 20070116
  3. ALCOHOL (ETHANOL) [Suspect]
     Indication: DRUG USE FOR UNKNOWN INDICATION
  4. BENZODIAZEPINES (BENZODIAZEPINE DERIVATIVES) [Suspect]
     Indication: DRUG USE FOR UNKNOWN INDICATION

REACTIONS (3)
  - ALCOHOL POISONING [None]
  - MOOD ALTERED [None]
  - THERAPEUTIC AGENT TOXICITY [None]
